FAERS Safety Report 8711487 (Version 2)
Quarter: 2013Q1

REPORT INFORMATION
  Report Type: Spontaneous
  Country: US (occurrence: US)
  Receive Date: 20120807
  Receipt Date: 20130329
  Transmission Date: 20140127
  Serious: No
  Sender: FDA-Public Use
  Company Number: US-009507513-1208USA002209

PATIENT
  Sex: Female

DRUGS (1)
  1. DR. SCHOLL^S CALLUS REMOVERS [Suspect]
     Indication: HYPERKERATOSIS
     Dosage: UNK, UNKNOWN
     Route: 061

REACTIONS (2)
  - Application site haemorrhage [Unknown]
  - Device malfunction [Unknown]
